FAERS Safety Report 17210613 (Version 8)
Quarter: 2020Q1

REPORT INFORMATION
  Report Type: Report from Study
  Country: RU (occurrence: RU)
  Receive Date: 20191227
  Receipt Date: 20200124
  Transmission Date: 20200409
  Serious: Yes (Life-Threatening, Hospitalization)
  Sender: FDA-Public Use
  Company Number: RU-EISAI MEDICAL RESEARCH-EC-2019-067820

PATIENT
  Age: 75 Year
  Sex: Female
  Weight: 54 kg

DRUGS (20)
  1. DALNEVA [Concomitant]
     Active Substance: AMLODIPINE BESYLATE\PERINDOPRIL ERBUMINE
     Dates: start: 20191112
  2. PEMBROLIZUMAB. [Suspect]
     Active Substance: PEMBROLIZUMAB
     Indication: NON-SMALL CELL LUNG CANCER METASTATIC
     Route: 041
     Dates: start: 20190614, end: 20191108
  3. PEMBROLIZUMAB. [Suspect]
     Active Substance: PEMBROLIZUMAB
     Route: 041
     Dates: start: 20191129, end: 20191129
  4. OMEPRAZOLE. [Concomitant]
     Active Substance: OMEPRAZOLE
     Dates: start: 20190607
  5. VEROSPIRON [Concomitant]
     Active Substance: SPIRONOLACTONE
     Dates: start: 20191112
  6. PANANGIN [Concomitant]
     Active Substance: MAGNESIUM ASPARTATE\POTASSIUM ASPARTATE
     Dates: start: 20191129
  7. HEPARIN [Concomitant]
     Active Substance: HEPARIN SODIUM
     Dates: start: 20191209, end: 20191223
  8. LENVATINIB [Suspect]
     Active Substance: LENVATINIB
     Indication: NON-SMALL CELL LUNG CANCER METASTATIC
     Route: 048
     Dates: start: 20190614, end: 20191219
  9. MAGNESIUM (UNSPECIFIED) [Concomitant]
     Active Substance: MAGNESIUM
     Dates: start: 20191209, end: 20191223
  10. ATORIS [Concomitant]
     Active Substance: ATORVASTATIN CALCIUM
     Dates: start: 20191209, end: 20191223
  11. AERIUS [Concomitant]
     Dates: start: 20191019
  12. POTASSIUM (UNSPECIFIED) [Concomitant]
     Active Substance: POTASSIUM
     Dates: start: 20191209, end: 20191223
  13. PHYSIOTENS [Concomitant]
     Active Substance: MOXONIDINE
     Dates: start: 20191209, end: 20191223
  14. EUTHYROX [Concomitant]
     Active Substance: LEVOTHYROXINE SODIUM
     Dates: start: 20191120
  15. LASIX [Concomitant]
     Active Substance: FUROSEMIDE
     Dates: start: 20191209, end: 20191223
  16. AMLODIPINE [Concomitant]
     Active Substance: AMLODIPINE BESYLATE
     Dates: start: 20191209, end: 20191223
  17. PEMBROLIZUMAB. [Suspect]
     Active Substance: PEMBROLIZUMAB
     Route: 041
     Dates: start: 20200120
  18. ATORVASTATIN [Concomitant]
     Active Substance: ATORVASTATIN
     Dates: start: 200801
  19. VALSARTAN. [Concomitant]
     Active Substance: VALSARTAN
     Dates: start: 20191209, end: 20191223
  20. XARELTO [Concomitant]
     Active Substance: RIVAROXABAN
     Dates: start: 20191209, end: 20191223

REACTIONS (1)
  - Pulmonary embolism [Recovered/Resolved]

NARRATIVE: CASE EVENT DATE: 20191220
